FAERS Safety Report 6899906-3 (Version None)
Quarter: 2010Q3

REPORT INFORMATION
  Report Type: 
  Country: None (occurrence: None)
  Receive Date: 20100708
  Receipt Date: 20100505
  Transmission Date: 20110219
  Serious: Yes (Other)
  Sender: FDA-Public Use
  Company Number: 2010057391

PATIENT
  Sex: Male
  Weight: 101.1 kg

DRUGS (5)
  1. CHANTIX [Suspect]
     Indication: SMOKING CESSATION THERAPY
     Dosage: 0.5 MG, DAILY, ORAL
     Route: 048
     Dates: start: 20100503
  2. LORAZEPAM [Concomitant]
  3. VITAMIN B COMPLEX (CALCIUM PANTOTHENATE, NICTINAMIDE, PYRIDOXINE HYDRO [Concomitant]
  4. CALCIUM WITH VITAMIN D (CALCIUM PHOSPHATE, CALCIUM SODIUM LACTATE, ERG [Concomitant]
  5. VITAMIN D [Concomitant]

REACTIONS (2)
  - ANXIETY [None]
  - PANIC ATTACK [None]
